FAERS Safety Report 22202291 (Version 1)
Quarter: 2023Q2

REPORT INFORMATION
  Report Type: Spontaneous
  Country: US (occurrence: US)
  Receive Date: 20230412
  Receipt Date: 20230412
  Transmission Date: 20230721
  Serious: No
  Sender: FDA-Public Use
  Company Number: US-BAYER-2023A046924

PATIENT

DRUGS (1)
  1. CLARITIN-D 24 HOUR [Suspect]
     Active Substance: LORATADINE\PSEUDOEPHEDRINE SULFATE
     Indication: Sinus disorder

REACTIONS (6)
  - Retching [None]
  - Vomiting [None]
  - Therapeutic product effect incomplete [None]
  - Product shape issue [None]
  - Product size issue [None]
  - Therapeutic response decreased [None]
